FAERS Safety Report 5620723-6 (Version None)
Quarter: 2008Q1

REPORT INFORMATION
  Report Type: 
  Country: None (occurrence: None)
  Receive Date: 20080208
  Receipt Date: 20080206
  Transmission Date: 20080703
  Serious: Yes (Other)
  Sender: FDA-Public Use
  Company Number: GB-MERCK-0802GBR00023

PATIENT
  Age: 68 Year
  Sex: Male

DRUGS (6)
  1. ZETIA [Suspect]
     Indication: ATTENTION DEFICIT/HYPERACTIVITY DISORDER
     Route: 048
     Dates: start: 20071206, end: 20071228
  2. ZETIA [Suspect]
     Indication: PSYCHOMOTOR HYPERACTIVITY
     Route: 048
     Dates: start: 20071206, end: 20071228
  3. BENDROFLUMETHIAZIDE [Concomitant]
     Indication: HYPERTENSION
     Route: 048
  4. PROSCAR [Concomitant]
     Indication: PROSTATECTOMY
     Route: 048
     Dates: start: 20061221
  5. FLUOXETINE [Concomitant]
     Indication: DEPRESSION
     Route: 048
     Dates: start: 20071004
  6. OMEPRAZOLE [Concomitant]
     Indication: HIATUS HERNIA
     Route: 048
     Dates: start: 20040105

REACTIONS (2)
  - NAUSEA [None]
  - STOMACH DISCOMFORT [None]
